FAERS Safety Report 8503068-6 (Version None)
Quarter: 2012Q3

REPORT INFORMATION
  Report Type: 
  Country: None (occurrence: None)
  Receive Date: 20120705
  Receipt Date: 20120705
  Transmission Date: 20120928
  Serious: Yes (Hospitalization, Other)
  Sender: FDA-Public Use
  Company Number: None

PATIENT
  Age: 85 Year
  Sex: Male
  Weight: 77.1115 kg

DRUGS (10)
  1. LISINOPRIL [Concomitant]
  2. PRESERVISION EYE VITAMINS [Concomitant]
  3. TRIAMTERNE [Concomitant]
  4. TRAZODONE HCL [Concomitant]
  5. FLUTICASONE PROPIONATE [Suspect]
     Indication: UPPER-AIRWAY COUGH SYNDROME
     Dosage: 2 SPRAYS IN EACH NOSTRIL ONE PER DAY UNK
     Route: 045
     Dates: start: 20120501, end: 20120508
  6. COLAZAL [Concomitant]
  7. MULTI-VITAMINS [Concomitant]
  8. OMEPRAZOLE [Concomitant]
  9. CLONAZEPAM [Concomitant]
  10. ASPIRIN [Concomitant]

REACTIONS (1)
  - EPISTAXIS [None]
